FAERS Safety Report 5506305-5 (Version None)
Quarter: 2007Q4

REPORT INFORMATION
  Report Type: 
  Country: None (occurrence: None)
  Receive Date: 20071101
  Receipt Date: 20071019
  Transmission Date: 20080405
  Serious: Yes (Hospitalization)
  Sender: FDA-Public Use
  Company Number: PAR_01780_2007

PATIENT
  Age: 84 Year
  Sex: Female

DRUGS (6)
  1. IBUPROFEN [Suspect]
     Indication: DRUG USE FOR UNKNOWN INDICATION
     Dosage: (DF ORAL)
     Route: 048
     Dates: end: 20070918
  2. ACETYLSALICYLIC ACID SRT [Suspect]
     Indication: DRUG USE FOR UNKNOWN INDICATION
     Dosage: (100 MG DF ORAL)
     Route: 048
     Dates: end: 20070918
  3. LOSARTAN POTASSIUM [Concomitant]
  4. TRAMADOL HCL [Concomitant]
  5. ATENOLOL [Concomitant]
  6. SPIRONOLACTONE [Concomitant]

REACTIONS (4)
  - GASTRIC ULCER [None]
  - HAEMATEMESIS [None]
  - HAEMATOCHEZIA [None]
  - HIATUS HERNIA [None]
